FAERS Safety Report 8080705-4 (Version None)
Quarter: 2012Q1

REPORT INFORMATION
  Report Type: 
  Country: None (occurrence: None)
  Receive Date: 20120130
  Receipt Date: 20120118
  Transmission Date: 20120608
  Serious: Yes (Other)
  Sender: FDA-Public Use
  Company Number: IT-JHP PHARMACEUTICALS, LLC-JHP201200032

PATIENT
  Sex: Female

DRUGS (4)
  1. DANTRIUM [Suspect]
     Indication: QUADRIPARESIS
     Dosage: 55 MG, DAILY
     Route: 048
     Dates: start: 20110620, end: 20110716
  2. LIORESAL [Concomitant]
     Dosage: 25 MG, UNK
     Dates: start: 20110321, end: 20120117
  3. TENORMIN [Concomitant]
     Dosage: UNK
     Dates: start: 20110126, end: 20120117
  4. CLONAZEPAM [Concomitant]
     Dosage: UNK
     Route: 048
     Dates: start: 20110329, end: 20111114

REACTIONS (2)
  - SALIVARY HYPERSECRETION [None]
  - DYSPHAGIA [None]
